FAERS Safety Report 8368221-3 (Version None)
Quarter: 2012Q2

REPORT INFORMATION
  Report Type: 
  Country: None (occurrence: None)
  Receive Date: 20120517
  Receipt Date: 20120514
  Transmission Date: 20120825
  Serious: Yes (Other)
  Sender: FDA-Public Use
  Company Number: PHHY2012FR034292

PATIENT
  Age: 65 Year
  Sex: Male

DRUGS (2)
  1. ACETAMINOPHEN [Suspect]
     Dosage: 10 G, DAILY
  2. CODEINE PHOSPHATE [Suspect]

REACTIONS (2)
  - HYPERTENSION [None]
  - DRUG DEPENDENCE [None]
